FAERS Safety Report 15582914 (Version 2)
Quarter: 2018Q4

REPORT INFORMATION
  Report Type: Spontaneous
  Country: CH (occurrence: CH)
  Receive Date: 20181105
  Receipt Date: 20181113
  Transmission Date: 20190205
  Serious: Yes (Hospitalization)
  Sender: FDA-Public Use
  Company Number: CH-TEVA-2018-CH-971899

PATIENT
  Sex: Male

DRUGS (1)
  1. IRFEN [Suspect]
     Active Substance: IBUPROFEN
     Dosage: THE 31-YEAR-OLD MALE PATIENT (BODY WEIGHT 80KG) RECEIVED ON 02 JULY 2018 IRFEN? (IBUPROFEN) 400MG.

REACTIONS (6)
  - Dyspnoea [Recovering/Resolving]
  - Swelling [Recovering/Resolving]
  - Malaise [Recovering/Resolving]
  - Dysphagia [Recovering/Resolving]
  - Hypersensitivity [Recovering/Resolving]
  - Dermatitis bullous [Recovering/Resolving]
